FAERS Safety Report 10233296 (Version 1)
Quarter: 2014Q2

REPORT INFORMATION
  Report Type: Spontaneous
  Country: US (occurrence: US)
  Receive Date: 20140612
  Receipt Date: 20140612
  Transmission Date: 20141212
  Serious: Yes (Other)
  Sender: FDA-Public Use
  Company Number: US-ASTELLAS-2014US006709

PATIENT
  Age: 53 Year
  Sex: Female

DRUGS (1)
  1. TARCEVA [Suspect]
     Indication: NEOPLASM MALIGNANT
     Dosage: 1 HOUR BEFORE MEALS, 150 MG, ONCE DAILY
     Route: 048
     Dates: start: 20140531

REACTIONS (8)
  - Pulmonary haemorrhage [Unknown]
  - Dyspepsia [Unknown]
  - Dyspepsia [Unknown]
  - Rash [Unknown]
  - Nausea [Unknown]
  - Vomiting [Unknown]
  - Diarrhoea [Unknown]
  - Fatigue [Unknown]
